FAERS Safety Report 20378940 (Version 2)
Quarter: 2022Q2

REPORT INFORMATION
  Report Type: Spontaneous
  Country: US (occurrence: US)
  Receive Date: 20220126
  Receipt Date: 20220513
  Transmission Date: 20220720
  Serious: No
  Sender: FDA-Public Use
  Company Number: US-PFIZER INC-202101426075

PATIENT
  Age: 52 Year
  Sex: Female

DRUGS (1)
  1. XELJANZ XR [Suspect]
     Active Substance: TOFACITINIB CITRATE
     Dosage: 11 MG, 1X/DAY (1 DAILY)

REACTIONS (7)
  - Medication error [Unknown]
  - Blood pressure increased [Unknown]
  - Sleep deficit [Unknown]
  - Stress [Unknown]
  - Tremor [Unknown]
  - Thinking abnormal [Unknown]
  - Peripheral swelling [Unknown]
